FAERS Safety Report 8808423 (Version 1)
Quarter: 2012Q4

REPORT INFORMATION
  Report Type: 
  Country: US (occurrence: US)
  Receive Date: 20120926
  Receipt Date: 20120926
  Transmission Date: 20130627
  Serious: Yes (Other)
  Sender: FDA-Public Use
  Company Number: US-PFIZER INC-2012232485

PATIENT

DRUGS (2)
  1. GLUCOTROL XL [Suspect]
     Dosage: UNK
  2. LIPITOR [Suspect]
     Dosage: UNK

REACTIONS (2)
  - Diabetes mellitus [Unknown]
  - Blood cholesterol increased [Unknown]
